FAERS Safety Report 4819364-X (Version None)
Quarter: 2005Q4

REPORT INFORMATION
  Report Type: 
  Country: None (occurrence: None)
  Receive Date: 20051031
  Receipt Date: 20050805
  Transmission Date: 20060501
  Serious: No
  Sender: FDA-Public Use
  Company Number: 2005PV000859

PATIENT
  Age: 58 Year
  Sex: Female
  Weight: 105.2345 kg

DRUGS (16)
  1. SYMLIN [Suspect]
     Indication: DIABETES MELLITUS NON-INSULIN-DEPENDENT
     Dosage: 120 MCG;BID;SC;60 MCG;SC
     Route: 058
     Dates: end: 20050804
  2. GLYBURIDE [Concomitant]
  3. GLUCOPHAGE [Concomitant]
  4. BETAPACE [Concomitant]
  5. LISINOPRIL [Concomitant]
  6. CLONIDINE [Concomitant]
  7. METHAZOLAMIDE [Concomitant]
  8. LASIX [Concomitant]
  9. HYDROCHLOROTHIAZIDE [Concomitant]
  10. KCL SR [Concomitant]
  11. NIACIN [Concomitant]
  12. NORVASC [Concomitant]
  13. PRAVACHOL [Concomitant]
  14. ASPIRIN [Concomitant]
  15. NEURONTIN [Concomitant]
  16. INSULIN [Concomitant]

REACTIONS (9)
  - DECREASED APPETITE [None]
  - DIARRHOEA [None]
  - DYSPNOEA [None]
  - NAUSEA [None]
  - OEDEMA PERIPHERAL [None]
  - PALLOR [None]
  - RETCHING [None]
  - SOMNOLENCE [None]
  - WEIGHT FLUCTUATION [None]
